FAERS Safety Report 7706987 (Version 2)
Quarter: 2014Q1

REPORT INFORMATION
  Report Type: Spontaneous
  Country: US (occurrence: US)
  Receive Date: 20101214
  Receipt Date: 20140320
  Transmission Date: 20141002
  Serious: No
  Sender: FDA-Public Use
  Company Number: US-JNJFOC-20101101679

PATIENT
  Age: 59 Year
  Sex: Female
  Weight: 102.97 kg

DRUGS (8)
  1. INVEGA SUSTENNA [Suspect]
     Indication: SCHIZOAFFECTIVE DISORDER BIPOLAR TYPE
     Route: 030
     Dates: start: 201008, end: 20101103
  2. DEPAKOTE [Concomitant]
     Dosage: 3000 MG IN MORNING AND 2000 MG AT BEDTIME
     Route: 048
  3. INVEGA [Concomitant]
     Indication: SCHIZOAFFECTIVE DISORDER BIPOLAR TYPE
     Route: 048
  4. ACTOSE [Concomitant]
     Dosage: 15 MG IN MORNING AND 15 MG AT NIGHT
     Route: 048
  5. LEVOTHYROXINE [Concomitant]
     Indication: HYPOTHYROIDISM
     Route: 048
  6. HCTZ [Concomitant]
     Indication: HYPERTENSION
     Route: 048
  7. LOVAZA [Concomitant]
     Route: 048
  8. BENADRYL [Concomitant]
     Route: 048

REACTIONS (2)
  - Bruxism [Recovered/Resolved]
  - Tremor [Recovered/Resolved]
